FAERS Safety Report 10077404 (Version 2)
Quarter: 2014Q2

REPORT INFORMATION
  Report Type: Spontaneous
  Country: US (occurrence: US)
  Receive Date: 20140414
  Receipt Date: 20140414
  Transmission Date: 20141212
  Serious: No
  Sender: FDA-Public Use
  Company Number: US-BANPHARM-20131483

PATIENT
  Age: 83 Year
  Sex: Female
  Weight: 71.21 kg

DRUGS (1)
  1. ALEVE LIQUID GELS 220 MG [Suspect]
     Indication: PAIN
     Dosage: 2 DF, PRN,
     Route: 048
     Dates: start: 20130707

REACTIONS (1)
  - Drug effect incomplete [Unknown]
